FAERS Safety Report 6289125-6 (Version None)
Quarter: 2009Q3

REPORT INFORMATION
  Report Type: 
  Country: None (occurrence: None)
  Receive Date: 20090728
  Receipt Date: 20090717
  Transmission Date: 20100115
  Serious: Yes (Other)
  Sender: FDA-Public Use
  Company Number: CHPA2009US15683

PATIENT
  Age: 53 Year
  Sex: Female

DRUGS (3)
  1. EXCEDRIN (MIGRAINE) [Suspect]
     Indication: ARTHRALGIA
     Dosage: 2 DF, Q6H, ORAL
     Route: 048
  2. EXCEDRIN (MIGRAINE) [Suspect]
     Indication: MIGRAINE
     Dosage: 2 DF, Q6H, ORAL
     Route: 048
  3. EXCEDRIN (MIGRAINE) [Suspect]
     Indication: PAIN
     Dosage: 2 DF, Q6H, ORAL
     Route: 048

REACTIONS (6)
  - DRUG DEPENDENCE [None]
  - DRUG INEFFECTIVE [None]
  - HEADACHE [None]
  - INTENTIONAL DRUG MISUSE [None]
  - MIDDLE INSOMNIA [None]
  - WEIGHT DECREASED [None]
